FAERS Safety Report 5496493-1 (Version None)
Quarter: 2007Q4

REPORT INFORMATION
  Report Type: 
  Country: None (occurrence: None)
  Receive Date: 20071025
  Receipt Date: 20071015
  Transmission Date: 20080405
  Serious: Yes (Hospitalization)
  Sender: FDA-Public Use
  Company Number: US-ELI_LILLY_AND_COMPANY-US200710004015

PATIENT
  Age: 40 Year
  Sex: Female

DRUGS (8)
  1. CAPREOMYCIN SULFATE [Suspect]
     Indication: PULMONARY TUBERCULOSIS
     Dosage: 750 MG, QOD
     Route: 030
  2. ISONIAZID [Concomitant]
     Indication: PULMONARY TUBERCULOSIS
     Dosage: 600 MG, DAILY (1/D)
  3. P.A.S. [Concomitant]
     Indication: PULMONARY TUBERCULOSIS
     Dosage: 4 G, DAILY (1/D)
  4. ETHAMBUTOL HCL [Concomitant]
     Indication: PULMONARY TUBERCULOSIS
     Dosage: 250 MG, 3/D
  5. PYRIDOXINE HYDROCHLORIDE [Concomitant]
     Indication: PULMONARY TUBERCULOSIS
     Dosage: 50 MG, DAILY (1/D)
  6. POTASSIUM CHLORIDE [Concomitant]
     Dosage: 25 MEQ, 2/D
  7. CALCIUM LACTATE [Concomitant]
     Dosage: 1 G, UNK
  8. MAGNESIUM OXIDE [Concomitant]
     Dosage: 250 MG, 3/D

REACTIONS (4)
  - ACID BASE BALANCE ABNORMAL [None]
  - ELECTROLYTE IMBALANCE [None]
  - MAGNESIUM METABOLISM DISORDER [None]
  - RENAL TUBULAR DISORDER [None]
